FAERS Safety Report 16259943 (Version 2)
Quarter: 2019Q2

REPORT INFORMATION
  Report Type: Spontaneous
  Country: US (occurrence: US)
  Receive Date: 20190501
  Receipt Date: 20190514
  Transmission Date: 20190711
  Serious: Yes (Death, Other)
  Sender: FDA-Public Use
  Company Number: US-TORRENT-00008555

PATIENT
  Age: 80 Year
  Sex: Male
  Weight: 74 kg

DRUGS (1)
  1. LOSARTAN. [Suspect]
     Active Substance: LOSARTAN
     Indication: PRODUCT USED FOR UNKNOWN INDICATION
     Dosage: UNKNOWN
     Dates: start: 2018

REACTIONS (2)
  - Myelodysplastic syndrome [Fatal]
  - Liver disorder [Unknown]

NARRATIVE: CASE EVENT DATE: 2018
